FAERS Safety Report 14612340 (Version 4)
Quarter: 2018Q2

REPORT INFORMATION
  Report Type: Report from Study
  Country: DE (occurrence: DE)
  Receive Date: 20180308
  Receipt Date: 20180411
  Transmission Date: 20180711
  Serious: Yes (Hospitalization)
  Sender: FDA-Public Use
  Company Number: DE-ROCHE-1999211

PATIENT
  Sex: Male

DRUGS (14)
  1. RITUXIMAB. [Suspect]
     Active Substance: RITUXIMAB
     Indication: B-CELL LYMPHOMA
     Dosage: DAY 1?DATE LAST RITUXIMAB GIVEN PRIOR SAE (FIRST OCCURENCE): 18/SEP/2017 AND SECOND OCCURENCE 15/FEB
     Route: 042
     Dates: start: 20170814
  2. VINCRISTINE [Suspect]
     Active Substance: VINCRISTINE
     Indication: B-CELL LYMPHOMA
     Dosage: DAY 2
     Route: 042
     Dates: start: 20170905, end: 20171201
  3. METHOTREXATE. [Suspect]
     Active Substance: METHOTREXATE
     Indication: B-CELL LYMPHOMA
     Dosage: 1X BEFORE START CTX, 1X AFTER CTX FOR 141 DAY(S)
     Route: 042
     Dates: start: 20170815, end: 20180102
  4. CYCLOPHOSPHAMIDE. [Suspect]
     Active Substance: CYCLOPHOSPHAMIDE
     Indication: B-CELL LYMPHOMA
     Dosage: DAY 2
     Route: 042
     Dates: start: 20170905, end: 20171201
  5. VALSARTAN/HYDROCHLOROTHIAZIDE AHCL [Concomitant]
     Indication: HYPERTENSION
     Dosage: 160/12.5MG, 1-0-0-0
     Route: 048
  6. LORAZEPAM. [Concomitant]
     Active Substance: LORAZEPAM
     Indication: INSOMNIA
     Dosage: 1 MG, 0-0-0-1/2
     Route: 048
  7. PREDNISOLONE. [Suspect]
     Active Substance: PREDNISOLONE
     Indication: B-CELL LYMPHOMA
     Dosage: DAY 1 TO 5
     Route: 048
     Dates: start: 20170814, end: 20171201
  8. VALSARTAN. [Concomitant]
     Active Substance: VALSARTAN
     Indication: HYPERTENSION
     Route: 048
  9. PEGFILGRASTIM [Suspect]
     Active Substance: PEGFILGRASTIM
     Indication: B-CELL LYMPHOMA
     Dosage: DAY 4
     Route: 058
     Dates: start: 20170907, end: 20171204
  10. ACETYLSALICYLIC ACID [Concomitant]
     Active Substance: ASPIRIN
     Indication: ANTICOAGULANT THERAPY
     Route: 065
     Dates: start: 20170923
  11. LEUCOVORIN. [Suspect]
     Active Substance: LEUCOVORIN
     Indication: B-CELL LYMPHOMA
     Dosage: DEPENDING ON MTX LEVEL IN BLOOD, D1-D4 FOR 143 DAY(S)
     Route: 042
     Dates: start: 20170816, end: 20180105
  12. METOPROLOLTARTRAT [Concomitant]
     Indication: HYPERTENSION
     Route: 048
  13. LERCANIDIPINE [Concomitant]
     Active Substance: LERCANIDIPINE
     Indication: HYPERTENSION
     Route: 048
  14. DOXORUBICINE [Suspect]
     Active Substance: DOXORUBICIN
     Indication: B-CELL LYMPHOMA
     Dosage: DAY 2
     Route: 042
     Dates: start: 20170905, end: 20171201

REACTIONS (2)
  - Circulatory collapse [Recovered/Resolved]
  - Circulatory collapse [Recovered/Resolved]

NARRATIVE: CASE EVENT DATE: 20170923
